FAERS Safety Report 14067406 (Version 5)
Quarter: 2019Q2

REPORT INFORMATION
  Report Type: Spontaneous
  Country: US (occurrence: US)
  Receive Date: 20171009
  Receipt Date: 20190514
  Transmission Date: 20190711
  Serious: No
  Sender: FDA-Public Use
  Company Number: US-PFIZER INC-2017427852

PATIENT
  Age: 76 Year
  Sex: Female
  Weight: 70.31 kg

DRUGS (4)
  1. LYRICA [Suspect]
     Active Substance: PREGABALIN
     Indication: HEREDITARY MOTOR AND SENSORY NEUROPATHY
     Dosage: 150 MG, 3X/DAY (1 CAPSULE 3 TIMES A DAY ORALLY)
     Route: 048
  2. CYMBALTA [Concomitant]
     Active Substance: DULOXETINE HYDROCHLORIDE
     Dosage: 30 MG, 1X/DAY [60 MG CAPSULE IN THE AM, 30 MG IN THE PM]
  3. LYRICA [Suspect]
     Active Substance: PREGABALIN
     Dosage: 75 MG, 1X/DAY (EVENING, IF NEEDED)/ (75MG PILL IN THE AFTERNOON )
     Route: 048
  4. CYMBALTA [Concomitant]
     Active Substance: DULOXETINE HYDROCHLORIDE
     Indication: PAIN
     Dosage: 60 MG, 1X/DAY [60 MG CAPSULE IN THE AM, 30 MG IN THE PM]

REACTIONS (6)
  - Off label use [Unknown]
  - Memory impairment [Not Recovered/Not Resolved]
  - Product use issue [Unknown]
  - Product dispensing error [Unknown]
  - Paraesthesia [Unknown]
  - Drug ineffective for unapproved indication [Unknown]
